FAERS Safety Report 19923184 (Version 2)
Quarter: 2021Q4

REPORT INFORMATION
  Report Type: Spontaneous
  Country: US (occurrence: US)
  Receive Date: 20211006
  Receipt Date: 20211116
  Transmission Date: 20220303
  Serious: No
  Sender: FDA-Public Use
  Company Number: US-SA-SAC20211004000526

PATIENT
  Age: 31 Year
  Sex: Male

DRUGS (1)
  1. DUPIXENT [Suspect]
     Active Substance: DUPILUMAB
     Indication: Dermatitis atopic
     Dosage: 300 MG (FREQUENCY: OTHER)
     Route: 058
     Dates: start: 20210810

REACTIONS (4)
  - Skin discolouration [Recovering/Resolving]
  - Skin mass [Unknown]
  - Fatigue [Unknown]
  - Injection site pain [Unknown]

NARRATIVE: CASE EVENT DATE: 20210818
